FAERS Safety Report 13031247 (Version 2)
Quarter: 2017Q1

REPORT INFORMATION
  Report Type: Spontaneous
  Country: US (occurrence: US)
  Receive Date: 20161215
  Receipt Date: 20170114
  Transmission Date: 20170428
  Serious: Yes (Hospitalization, Other)
  Sender: FDA-Public Use
  Company Number: US-009507513-1612USA002743

PATIENT
  Age: 69 Year
  Sex: Male

DRUGS (2)
  1. DULERA [Suspect]
     Active Substance: FORMOTEROL FUMARATE DIHYDRATE\MOMETASONE FUROATE
     Indication: ASTHMA
     Dosage: 100MG, 2 PUFFS TWICE A DAY
     Route: 055
     Dates: start: 2013
  2. ALBUTEROL. [Concomitant]
     Active Substance: ALBUTEROL
     Dosage: 2 PUFFS EVERY FOUR HOURS AS NEEDED

REACTIONS (3)
  - Cardiac ablation [Recovered/Resolved]
  - Product container issue [Unknown]
  - Heart valve replacement [Recovered/Resolved]

NARRATIVE: CASE EVENT DATE: 2014
